FAERS Safety Report 6083292-5 (Version None)
Quarter: 2009Q1

REPORT INFORMATION
  Report Type: 
  Country: None (occurrence: None)
  Receive Date: 20090213
  Receipt Date: 20090213
  Transmission Date: 20090719
  Serious: Yes (Other)
  Sender: FDA-Public Use
  Company Number: None

PATIENT
  Age: 77 Year
  Sex: Female
  Weight: 70.3075 kg

DRUGS (2)
  1. EVISTA [Suspect]
     Dates: start: 20081017, end: 20081118
  2. EVISTA [Suspect]
     Dates: start: 20081112, end: 20081118

REACTIONS (1)
  - DEATH [None]
